FAERS Safety Report 23798357 (Version 9)
Quarter: 2024Q4

REPORT INFORMATION
  Report Type: Spontaneous
  Country: US (occurrence: US)
  Receive Date: 20240430
  Receipt Date: 20241004
  Transmission Date: 20250115
  Serious: No
  Sender: PFIZER
  Company Number: US-PFIZER INC-202400095866

PATIENT
  Age: 65 Year
  Sex: Female
  Weight: 83.91 kg

DRUGS (2)
  1. GENOTROPIN [Suspect]
     Active Substance: SOMATROPIN
     Indication: Growth hormone deficiency
     Dosage: 1.4 MG, ONCE AT NIGHT ADMINISTERED IN THE LEG
     Dates: end: 20240409
  2. GENOTROPIN [Suspect]
     Active Substance: SOMATROPIN
     Indication: Hypothalamo-pituitary disorder
     Dosage: 1.4 MG, DAILY

REACTIONS (5)
  - Device information output issue [Unknown]
  - Device breakage [Unknown]
  - Device mechanical issue [Unknown]
  - Expired device used [Unknown]
  - Drug dose omission by device [Unknown]

NARRATIVE: CASE EVENT DATE: 20240409
